FAERS Safety Report 8616122-5 (Version None)
Quarter: 2012Q3

REPORT INFORMATION
  Report Type: 
  Country: None (occurrence: None)
  Receive Date: 20120823
  Receipt Date: 20120809
  Transmission Date: 20120928
  Serious: Yes (Death, Other)
  Sender: FDA-Public Use
  Company Number: PL-ROCHE-1100149

PATIENT
  Age: 62 Year
  Sex: Male

DRUGS (3)
  1. DIAPREL MR [Concomitant]
     Indication: DIABETES MELLITUS
  2. CISPLATIN [Suspect]
     Indication: PRODUCT USED FOR UNKNOWN INDICATION
     Dates: start: 20101214
  3. XELODA [Suspect]
     Indication: PRODUCT USED FOR UNKNOWN INDICATION
     Dates: start: 20101214

REACTIONS (12)
  - ASCITES [None]
  - GENERAL PHYSICAL HEALTH DETERIORATION [None]
  - INCREASED APPETITE [None]
  - KWASHIORKOR [None]
  - ANAEMIA [None]
  - PALMAR-PLANTAR ERYTHRODYSAESTHESIA SYNDROME [None]
  - DEATH [None]
  - APATHY [None]
  - THROMBOCYTOPENIA [None]
  - NAUSEA [None]
  - NEUTROPENIA [None]
  - CARCINOEMBRYONIC ANTIGEN INCREASED [None]
